FAERS Safety Report 15610581 (Version 1)
Quarter: 2018Q4

REPORT INFORMATION
  Report Type: Spontaneous
  Country: US (occurrence: US)
  Receive Date: 20181113
  Receipt Date: 20181113
  Transmission Date: 20190205
  Serious: No
  Sender: FDA-Public Use
  Company Number: US-ROCHE-1321872

PATIENT
  Age: 38 Year
  Sex: Female

DRUGS (6)
  1. HERCEPTIN [Suspect]
     Active Substance: TRASTUZUMAB
     Indication: BREAST CANCER
     Route: 042
     Dates: start: 20131113, end: 20131113
  2. HERCEPTIN [Suspect]
     Active Substance: TRASTUZUMAB
     Indication: BREAST CANCER
     Dosage: 12 TREATMENTS
     Route: 065
  3. HERCEPTIN [Suspect]
     Active Substance: TRASTUZUMAB
     Route: 065
     Dates: start: 20130302, end: 20131031
  4. ADRIAMYCIN [Concomitant]
     Active Substance: DOXORUBICIN HYDROCHLORIDE
     Dosage: 4 CYCLES, DOSE DENSE
     Route: 065
     Dates: start: 20120904, end: 20121016
  5. CYCLOPHOSPHAMID [Concomitant]
     Active Substance: CYCLOPHOSPHAMIDE
     Dosage: 4 CYCLES, DOSE DENSE
     Route: 065
     Dates: start: 20120904, end: 20121016
  6. TAXOL [Concomitant]
     Active Substance: PACLITAXEL
     Dosage: 12 TREATMENTS
     Route: 065
     Dates: start: 20121031, end: 20130116

REACTIONS (2)
  - No adverse event [Unknown]
  - Pregnancy [Unknown]
